FAERS Safety Report 22109231 (Version 1)
Quarter: 2023Q1

REPORT INFORMATION
  Report Type: Spontaneous
  Country: CN (occurrence: CN)
  Receive Date: 20230317
  Receipt Date: 20230317
  Transmission Date: 20230417
  Serious: Yes (Hospitalization)
  Sender: FDA-Public Use
  Company Number: CN-IGSA-BIG0022602

PATIENT
  Age: 69 Year
  Sex: Male
  Weight: 55 kg

DRUGS (6)
  1. PLASBUMIN-20 [Suspect]
     Active Substance: ALBUMIN HUMAN
     Indication: Hypoproteinaemia
     Dosage: 20 GRAM, QD
     Route: 042
     Dates: start: 20230214, end: 20230217
  2. ALBUMIN HUMAN [Suspect]
     Active Substance: ALBUMIN HUMAN
     Indication: Hypoproteinaemia
     Dosage: 20 GRAM, QD
     Route: 042
     Dates: start: 20230131, end: 20230204
  3. PARECOXIB SODIUM [Suspect]
     Active Substance: PARECOXIB SODIUM
     Indication: Pain
     Dosage: 40 MILLIGRAM, BID
     Route: 042
     Dates: start: 20230202, end: 20230220
  4. VANCOMYCIN [Suspect]
     Active Substance: VANCOMYCIN
     Indication: Infection
     Dosage: 1000 MILLIGRAM, BID
     Route: 042
     Dates: start: 20230207, end: 20230214
  5. ETORICOXIB CF [Concomitant]
     Indication: Pain
     Dosage: 60 MILLIGRAM, QD
     Route: 048
     Dates: start: 20230131, end: 20230207
  6. ROSUVASTATIN [Concomitant]
     Active Substance: ROSUVASTATIN
     Indication: Hepatic steatosis
     Dosage: 10 MILLIGRAM, QD
     Route: 048
     Dates: start: 20230131, end: 20230207

REACTIONS (3)
  - Acute kidney injury [Recovering/Resolving]
  - Blood creatinine increased [Recovering/Resolving]
  - Glomerular filtration rate decreased [Recovering/Resolving]

NARRATIVE: CASE EVENT DATE: 20230213
